FAERS Safety Report 15122029 (Version 1)
Quarter: 2018Q3

REPORT INFORMATION
  Report Type: Spontaneous
  Country: US (occurrence: US)
  Receive Date: 20180613
  Receipt Date: 20180613
  Transmission Date: 20181010
  Serious: Yes (Death, Life-Threatening, Hospitalization)
  Sender: FDA-Public Use
  Company Number: None

PATIENT
  Age: 83 Year
  Sex: Male
  Weight: 86.6 kg

DRUGS (1)
  1. ELIQUIS [Suspect]
     Active Substance: APIXABAN
     Indication: ATRIAL FIBRILLATION
     Route: 048
     Dates: start: 20150101, end: 20180522

REACTIONS (8)
  - Hemiplegia [None]
  - Cerebral haemorrhage [None]
  - Hyperhidrosis [None]
  - Intracranial mass [None]
  - Pain in extremity [None]
  - Facial paralysis [None]
  - Unresponsive to stimuli [None]
  - Brain midline shift [None]

NARRATIVE: CASE EVENT DATE: 20180522
